FAERS Safety Report 4363260-1 (Version None)
Quarter: 2004Q2

REPORT INFORMATION
  Report Type: 
  Country: None (occurrence: None)
  Receive Date: 20040518
  Receipt Date: 20040430
  Transmission Date: 20050107
  Serious: Yes (Other)
  Sender: FDA-Public Use
  Company Number: 206447

PATIENT
  Age: 72 Year
  Sex: Male

DRUGS (9)
  1. RITUXAN (RITUXAN) CONC FOR SOLUTION FOR INFUSION [Suspect]
     Indication: DRUG USE FOR UNKNOWN INDICATION
     Dosage: 750 MG, 1/WEEK, INTRAVENOUS
     Route: 042
  2. ACETYLSALICYLIC ACID ENTERIC COATED (ASPIRIN) [Concomitant]
  3. ALTACE (RAMIPRIL0 [Concomitant]
  4. CELEBREX [Concomitant]
  5. COLACE (DOCUSATE SODIUM) [Concomitant]
  6. IMOVANE (ZOPICLONE) [Concomitant]
  7. ZOSTRIX CREAM (CAPSICUM) [Concomitant]
  8. GRAVOL TAB [Concomitant]
  9. HEPARIN [Concomitant]

REACTIONS (4)
  - ARTHRALGIA [None]
  - BACK PAIN [None]
  - MYOCARDIAL INFARCTION [None]
  - NECK PAIN [None]
